FAERS Safety Report 5168387-2 (Version None)
Quarter: 2006Q4

REPORT INFORMATION
  Report Type: 
  Country: None (occurrence: None)
  Receive Date: 20061201
  Receipt Date: 20061120
  Transmission Date: 20070319
  Serious: Yes (Other)
  Sender: FDA-Public Use
  Company Number: 150044ISR

PATIENT
  Sex: Male

DRUGS (3)
  1. PREDNISOLONE [Suspect]
     Indication: POLYMYOSITIS
  2. IRINOTECAN HCL [Suspect]
     Indication: GASTROINTESTINAL CARCINOMA
  3. ATROPINE SULFATE [Suspect]
     Indication: GASTROINTESTINAL CARCINOMA
     Dosage: 0.25 MG SUBCUTANEOUS
     Route: 058

REACTIONS (2)
  - MONOPARESIS [None]
  - MUSCULAR WEAKNESS [None]
